FAERS Safety Report 5754838-9 (Version None)
Quarter: 2008Q2

REPORT INFORMATION
  Report Type: 
  Country: None (occurrence: None)
  Receive Date: 20080527
  Receipt Date: 20080514
  Transmission Date: 20081010
  Serious: Yes (Death, Hospitalization)
  Sender: FDA-Public Use
  Company Number: 2008US001359

PATIENT
  Age: 54 Year
  Sex: Female

DRUGS (2)
  1. PROGRAF [Suspect]
     Indication: RENAL TRANSPLANT
     Dosage: 5 MG, UID/QD, ORAL
     Route: 048
     Dates: start: 20070101, end: 20071201
  2. MYCOPHENOLATE MOFETIL [Concomitant]

REACTIONS (3)
  - DIABETIC COMPLICATION [None]
  - GRAFT LOSS [None]
  - TRANSPLANT REJECTION [None]
